FAERS Safety Report 5281933-3 (Version None)
Quarter: 2007Q1

REPORT INFORMATION
  Report Type: 
  Country: None (occurrence: None)
  Receive Date: 20070326
  Receipt Date: 20070314
  Transmission Date: 20070707
  Serious: Yes (Hospitalization)
  Sender: FDA-Public Use
  Company Number: GXKR2007GB02563

PATIENT
  Age: 85 Year
  Sex: Female
  Weight: 45 kg

DRUGS (12)
  1. WARFARIN SODIUM [Suspect]
     Indication: ATRIAL FIBRILLATION
     Dosage: ORAL
     Route: 048
     Dates: start: 20051213, end: 20070301
  2. BECLOMETHASONE DIPROPIONATE [Concomitant]
  3. COMBIVENT [Concomitant]
  4. DIGOXIN [Concomitant]
  5. FUROSEMIDE [Concomitant]
  6. LACTULOSE [Concomitant]
  7. ACETAMINOPHEN [Concomitant]
  8. RAMIPRIL [Concomitant]
  9. SENNA (SENNA, SENNA ALEXANDRINA) [Concomitant]
  10. SIMVASTATIN [Concomitant]
  11. TEMAZEPAM [Concomitant]
  12. TRAMADOL HCL [Concomitant]

REACTIONS (4)
  - CONTRAINDICATION TO MEDICAL TREATMENT [None]
  - HAEMATOMA [None]
  - MOBILITY DECREASED [None]
  - PAIN [None]
